FAERS Safety Report 11925902 (Version 3)
Quarter: 2016Q1

REPORT INFORMATION
  Report Type: Spontaneous
  Country: US (occurrence: US)
  Receive Date: 20160119
  Receipt Date: 20160321
  Transmission Date: 20160526
  Serious: Yes (Other)
  Sender: FDA-Public Use
  Company Number: US-JNJCP-30000319695

PATIENT
  Age: 63 Year
  Sex: Female

DRUGS (1)
  1. NEUTROGENA OIL FREE ACNE WASH PINK GRAPEFRUIT FOAMING SCRUB [Suspect]
     Active Substance: SALICYLIC ACID
     Indication: REMOVAL OF INERT MATTER FROM SKIN OR SUBCUTANEOUS TISSUE
     Dosage: QUARTER SIZE AMOUNT ONCE
     Route: 061
     Dates: start: 20151230, end: 20151230

REACTIONS (2)
  - Hypersensitivity [Recovered/Resolved]
  - Product odour abnormal [Unknown]

NARRATIVE: CASE EVENT DATE: 20151231
